FAERS Safety Report 22928795 (Version 4)
Quarter: 2024Q3

REPORT INFORMATION
  Report Type: Report from Study
  Country: ZA (occurrence: ZA)
  Receive Date: 20230911
  Receipt Date: 20240926
  Transmission Date: 20241017
  Serious: Yes (Death, Other)
  Sender: REGENERON
  Company Number: ZA-BAYER-2023A127075

PATIENT
  Sex: Female

DRUGS (2)
  1. EYLEA [Suspect]
     Active Substance: AFLIBERCEPT
     Indication: Neovascular age-related macular degeneration
     Dosage: UNK, SOLUTION FOR INJECTION
  2. EYLEA [Suspect]
     Active Substance: AFLIBERCEPT
     Dosage: 1 X VIAL, SOLUTION FOR INJECTION
     Dates: end: 20230513

REACTIONS (1)
  - Death [Fatal]

NARRATIVE: CASE EVENT DATE: 20230513
